FAERS Safety Report 9333795 (Version 1)
Quarter: 2013Q2

REPORT INFORMATION
  Report Type: Spontaneous
  Country: US (occurrence: US)
  Receive Date: 20130606
  Receipt Date: 20130606
  Transmission Date: 20140414
  Serious: No
  Sender: FDA-Public Use
  Company Number: US-AMGEN-USASP2013005013

PATIENT
  Age: 74 Year
  Sex: Female

DRUGS (4)
  1. PROLIA [Suspect]
     Indication: OSTEOPOROSIS POSTMENOPAUSAL
     Dosage: UNK
     Dates: start: 201208
  2. VITAMIN D3 [Concomitant]
     Dosage: 2000 IU, 3 TIMES/WK
  3. CALCIUM 600+VITAMIN D3 400 [Concomitant]
     Dosage: 600 MG, BID
  4. CALCIUM 600+VITAMIN D3 400 [Concomitant]
     Dosage: 400 IU, BID

REACTIONS (3)
  - Back pain [Recovered/Resolved]
  - Pruritus [Not Recovered/Not Resolved]
  - Macule [Not Recovered/Not Resolved]
